FAERS Safety Report 5023179-X (Version None)
Quarter: 2006Q2

REPORT INFORMATION
  Report Type: 
  Country: None (occurrence: None)
  Receive Date: 20060612
  Receipt Date: 20060602
  Transmission Date: 20061013
  Serious: No
  Sender: FDA-Public Use
  Company Number: US-RB-3402-2006

PATIENT
  Sex: Female
  Weight: 69.01 kg

DRUGS (6)
  1. SUBOXONE [Suspect]
     Indication: PAIN
     Dosage: JAN. 2005 THROUGH MAR. 2005
     Route: 060
  2. SUBOXONE [Suspect]
     Dosage: MAR. 2005 TO NOV. 2005
     Route: 060
  3. SUBOXONE [Suspect]
     Dosage: NOV. 2005 TO MAY 2006
     Route: 060
  4. SUBOXONE [Suspect]
     Dosage: STARTED IN JUNE 2006
     Route: 060
  5. DIAZEPAM [Concomitant]
     Indication: ANXIETY
     Dosage: APR. 2006 TO MAY 2006
     Route: 048
  6. DIAZEPAM [Concomitant]
     Dosage: PATIENT TAKES 10 MG AT BEDTIME AND 5 MG PRN SINCE MAY 2005.
     Route: 048

REACTIONS (2)
  - CARDIAC MURMUR [None]
  - OEDEMA PERIPHERAL [None]
